FAERS Safety Report 24552035 (Version 1)
Quarter: 2024Q4

REPORT INFORMATION
  Report Type: Spontaneous
  Country: US (occurrence: US)
  Receive Date: 20241026
  Receipt Date: 20241026
  Transmission Date: 20250115
  Serious: Yes (Death, Hospitalization, Other)
  Sender: AMGEN
  Company Number: US-AMGEN-USASP2024211371

PATIENT

DRUGS (8)
  1. PREDNISONE [Suspect]
     Active Substance: PREDNISONE
     Indication: Immunosuppressant drug therapy
     Dosage: 5 MILLIGRAM, QD (BY 1 MONTH)
     Route: 065
  2. PREDNISONE [Suspect]
     Active Substance: PREDNISONE
     Dosage: (5-10 MG) QD BY 6 MONTHS TAPER
     Route: 065
  3. TACROLIMUS [Concomitant]
     Active Substance: TACROLIMUS
     Indication: Solid organ transplant
     Dosage: UNK, 8-10 NG/ML IN FIRST YEAR
     Route: 048
  4. TACROLIMUS [Concomitant]
     Active Substance: TACROLIMUS
     Dosage: UNK, 6-8 NG/ML THEREAFTER
     Route: 048
  5. MYCOPHENOLIC ACID [Concomitant]
     Active Substance: MYCOPHENOLIC ACID
     Indication: Solid organ transplant
     Dosage: 720 MILLIGRAM, BID
     Route: 048
  6. DEXAMETHASONE [Concomitant]
     Active Substance: DEXAMETHASONE
     Indication: Solid organ transplant
     Dosage: 100 MILLIGRAM
     Route: 040
  7. NYSTATIN [Concomitant]
     Active Substance: NYSTATIN
     Indication: Solid organ transplant
     Dosage: UNK, 3 MONTHS
  8. SULFAMETHOXAZOLE\TRIMETHOPRIM [Concomitant]
     Active Substance: SULFAMETHOXAZOLE\TRIMETHOPRIM
     Indication: Solid organ transplant
     Dosage: UNK, 3 MONTHS

REACTIONS (10)
  - Pancreas transplant rejection [Fatal]
  - Kidney transplant rejection [Fatal]
  - Unevaluable event [Unknown]
  - Thrombosis [Unknown]
  - Post procedural complication [Unknown]
  - Postoperative wound infection [Unknown]
  - Opportunistic infection [Unknown]
  - Infection [Unknown]
  - Urinary tract infection [Unknown]
  - Bacterial infection [Unknown]
